FAERS Safety Report 10660803 (Version 1)
Quarter: 2014Q4

REPORT INFORMATION
  Report Type: Spontaneous
  Country: SI (occurrence: SI)
  Receive Date: 20141217
  Receipt Date: 20141217
  Transmission Date: 20150529
  Serious: Yes (Other)
  Sender: FDA-Public Use
  Company Number: SI-AMGEN-SVNSP2014096799

PATIENT
  Age: 73 Year
  Sex: Female

DRUGS (12)
  1. CAPECITABINE. [Concomitant]
     Active Substance: CAPECITABINE
     Dosage: UNK
     Dates: start: 201012, end: 201105
  2. RECONVAL K1 [Concomitant]
     Dosage: UNK
  3. XELOX [Concomitant]
     Active Substance: CAPECITABINE\OXALIPLATIN
     Indication: METASTASES TO LUNG
     Dosage: UNK
     Dates: start: 2013
  4. ADRIAMYCIN [Concomitant]
     Active Substance: DOXORUBICIN HYDROCHLORIDE
     Indication: METASTASES TO LIVER
     Dosage: UNK
     Dates: start: 201410
  5. PREDNIMUSTINE [Concomitant]
     Active Substance: PREDNIMUSTINE
     Indication: METASTASES TO LIVER
     Dosage: UNK
     Dates: start: 201410
  6. VINCRISTINE [Concomitant]
     Active Substance: VINCRISTINE
     Indication: METASTASES TO LIVER
     Dosage: UNK
     Dates: start: 201410
  7. VECTIBIX [Suspect]
     Active Substance: PANITUMUMAB
     Indication: ADENOCARCINOMA
     Dosage: 6 MG/KG, EVERY 2 WEEKS
     Route: 065
     Dates: start: 201402
  8. XGEVA [Suspect]
     Active Substance: DENOSUMAB
     Indication: RECTAL CANCER
     Dosage: UNK
     Route: 065
  9. OXALIPLATIN. [Concomitant]
     Active Substance: OXALIPLATIN
     Indication: METASTASES TO LIVER
     Dosage: UNK
     Dates: start: 201410
  10. KLIMICIN                           /00166002/ [Concomitant]
     Dosage: 1 % SOL, UNK
  11. 5 FU [Concomitant]
     Active Substance: FLUOROURACIL
     Indication: METASTASES TO LIVER
     Dosage: UNK
     Dates: start: 201410
  12. FOLINIC ACID [Concomitant]
     Active Substance: LEUCOVORIN
     Indication: METASTASES TO LIVER
     Dosage: UNK
     Dates: start: 201410

REACTIONS (4)
  - Metastases to liver [Unknown]
  - Skin toxicity [Unknown]
  - Carcinoembryonic antigen increased [Unknown]
  - Rash [Unknown]

NARRATIVE: CASE EVENT DATE: 2014
